FAERS Safety Report 14145607 (Version 1)
Quarter: 2017Q4

REPORT INFORMATION
  Report Type: Spontaneous
  Country: US (occurrence: US)
  Receive Date: 20171030
  Receipt Date: 20171030
  Transmission Date: 20180321
  Serious: Yes (Life-Threatening, Disabling, Other)
  Sender: FDA-Public Use
  Company Number: None

PATIENT
  Sex: Female
  Weight: 60.75 kg

DRUGS (2)
  1. SERTRALINE [Suspect]
     Active Substance: SERTRALINE HYDROCHLORIDE
     Indication: SOCIAL ANXIETY DISORDER
     Dosage: ?          QUANTITY:1 TABLET(S);?
     Route: 048
     Dates: start: 20140423, end: 20160828
  2. ASHWAGHANDA [Concomitant]

REACTIONS (9)
  - Obsessive thoughts [None]
  - Affective disorder [None]
  - Anorgasmia [None]
  - Anhedonia [None]
  - Quality of life decreased [None]
  - Suicidal ideation [None]
  - Anger [None]
  - Genital hypoaesthesia [None]
  - Apathy [None]

NARRATIVE: CASE EVENT DATE: 20150423
